FAERS Safety Report 8078561-3 (Version None)
Quarter: 2012Q1

REPORT INFORMATION
  Report Type: 
  Country: None (occurrence: None)
  Receive Date: 20120123
  Receipt Date: 20120109
  Transmission Date: 20120608
  Serious: Yes (Death, Life-Threatening, Hospitalization, Other)
  Sender: FDA-Public Use
  Company Number: 2012MA000543

PATIENT
  Age: 61 Year
  Sex: Female
  Weight: 66 kg

DRUGS (25)
  1. FLUCONAZOLE [Suspect]
     Dosage: 150 MG;
  2. TRIMETHOPRIM [Suspect]
     Dosage: 160 MG; QD
  3. HALOPERIDOL LACTATE [Suspect]
     Dosage: 20 MG; HS
  4. MOMETASONE FUROATE [Suspect]
     Dosage: 2 SPRAYS; BID; INH
     Route: 055
  5. ALENDRONATE SODIUM [Suspect]
     Dosage: 70 MG; QW
  6. CELECOXIB [Suspect]
     Dosage: 200 MG; BID
  7. FUROSEMIDE [Suspect]
     Dosage: 40 MG; QD
  8. CYCLOBENZAPRINE [Suspect]
     Dosage: 10 MG; PRN
  9. PREDNISONE TAB [Suspect]
     Dosage: 7.5 MG; QD
  10. HYDROXYZINE [Suspect]
     Dosage: 25 MG; BID
  11. LOPERAMIDE [Suspect]
     Dosage: 2 MG; PRN
  12. HYDROXYCHLOROQUINE SULFATE [Suspect]
     Dosage: 200 MG; BID
  13. LORAZEPAM [Suspect]
     Dosage: 2 MG; HS;
  14. OMEPRAZOLE [Suspect]
     Dosage: 20 MG; BID
  15. RISPERIDONE [Suspect]
     Dosage: 2 MG; QAM
  16. ESTROGENS CONJUGATED [Suspect]
     Dosage: 1.3 MG; QD
  17. DESIPRAMINE HCL [Suspect]
     Dosage: 25 MG; BID
  18. QUETIAPINE FUMARATE [Suspect]
     Dosage: 1800 MGL QD
     Dates: start: 20090901, end: 20090901
  19. TRAZODONE HCL [Suspect]
     Dosage: 200 MG; QHS
  20. VENLAFAXINE [Suspect]
     Dosage: 75 MG; BID
  21. BUDESONIDE [Suspect]
     Dosage: 200 MCG; QD; INH
     Route: 055
  22. ATORVASTATIN CALCIUM [Suspect]
     Dosage: 10 MG; QD
  23. LEVOTHYROXINE SODIUM [Suspect]
     Dosage: 50 MCG; QD
  24. SUMATRIPTAN [Suspect]
     Dosage: 50 MG; PRN
  25. SULFAMETHOXAZOLE [Suspect]
     Dosage: 800 MG; QD

REACTIONS (30)
  - NEUROLEPTIC MALIGNANT SYNDROME [None]
  - DEPRESSED LEVEL OF CONSCIOUSNESS [None]
  - TACHYCARDIA [None]
  - ASPIRATION [None]
  - RENAL FAILURE [None]
  - RESPIRATORY FAILURE [None]
  - ANTIPSYCHOTIC DRUG LEVEL INCREASED [None]
  - MUSCLE RIGIDITY [None]
  - FALL [None]
  - SEPTIC SHOCK [None]
  - RHABDOMYOLYSIS [None]
  - ELECTROLYTE IMBALANCE [None]
  - ANTIDEPRESSANT DRUG LEVEL INCREASED [None]
  - SEROTONIN SYNDROME [None]
  - TACHYPNOEA [None]
  - LEUKOCYTOSIS [None]
  - GENERAL PHYSICAL HEALTH DETERIORATION [None]
  - HAEMODYNAMIC INSTABILITY [None]
  - MALAISE [None]
  - HYPOTENSION [None]
  - PERIPHERAL COLDNESS [None]
  - ABDOMINAL DISTENSION [None]
  - APALLIC SYNDROME [None]
  - PYREXIA [None]
  - CYANOSIS [None]
  - ANXIETY [None]
  - CONTUSION [None]
  - LIVEDO RETICULARIS [None]
  - BREATH SOUNDS ABNORMAL [None]
  - MENTAL STATUS CHANGES [None]
